APPROVED DRUG PRODUCT: BENZTROPINE MESYLATE
Active Ingredient: BENZTROPINE MESYLATE
Strength: 2MG
Dosage Form/Route: TABLET;ORAL
Application: A081265 | Product #001 | TE Code: AA
Applicant: CHARTWELL RX SCIENCES LLC
Approved: Jan 23, 1992 | RLD: No | RS: No | Type: RX